FAERS Safety Report 15339855 (Version 4)
Quarter: 2019Q1

REPORT INFORMATION
  Report Type: Report from Study
  Country: US (occurrence: US)
  Receive Date: 20180831
  Receipt Date: 20190125
  Transmission Date: 20190417
  Serious: Yes (Other)
  Sender: FDA-Public Use
  Company Number: US-BAYER-2018-145916

PATIENT
  Age: 65 Year
  Sex: Female

DRUGS (4)
  1. NEXAVAR [Suspect]
     Active Substance: SORAFENIB
     Indication: HEPATIC CANCER
     Dosage: 200 MG, BID
     Route: 048
     Dates: start: 20180725, end: 20180731
  2. NEXAVAR [Suspect]
     Active Substance: SORAFENIB
     Indication: HEPATIC CANCER
     Dosage: 400 MG, BID
     Dates: start: 20180801, end: 20180803
  3. NEXAVAR [Suspect]
     Active Substance: SORAFENIB
     Indication: HEPATIC CANCER
     Dosage: 400 MG, MORNING AND 200MG, EVENING
     Route: 048
     Dates: start: 201808, end: 20180829
  4. NEXAVAR [Suspect]
     Active Substance: SORAFENIB
     Indication: HEPATIC CANCER
     Dosage: 400 MG, MORNING AND 200MG, EVENING
     Route: 048
     Dates: start: 20180408, end: 2018

REACTIONS (25)
  - Swelling face [Recovered/Resolved]
  - Pruritus [Recovering/Resolving]
  - Mouth swelling [Recovered/Resolved]
  - Off label use [None]
  - Stomatitis [None]
  - Depression [None]
  - Arthralgia [Recovering/Resolving]
  - Blood pressure increased [Recovered/Resolved]
  - Headache [Recovered/Resolved]
  - Nausea [Recovering/Resolving]
  - Abdominal pain upper [Recovering/Resolving]
  - Bruxism [None]
  - Oral pain [Recovering/Resolving]
  - Vomiting [None]
  - Tongue ulceration [Recovering/Resolving]
  - Burning sensation [Recovering/Resolving]
  - Drug intolerance [None]
  - Diarrhoea [Recovered/Resolved]
  - Stomatitis [Recovering/Resolving]
  - Tooth fracture [None]
  - Fatigue [Not Recovered/Not Resolved]
  - Back pain [Recovering/Resolving]
  - Feeding disorder [None]
  - Facial pain [Recovering/Resolving]
  - Toothache [Recovering/Resolving]

NARRATIVE: CASE EVENT DATE: 2018
